FAERS Safety Report 21823357 (Version 1)
Quarter: 2023Q1

REPORT INFORMATION
  Report Type: Spontaneous
  Country: IR (occurrence: IR)
  Receive Date: 20230105
  Receipt Date: 20230105
  Transmission Date: 20230418
  Serious: Yes (Other)
  Sender: FDA-Public Use
  Company Number: IR-009507513-2301USA000039

PATIENT
  Age: 41 Year
  Sex: Male

DRUGS (1)
  1. TEMODAL [Suspect]
     Active Substance: TEMOZOLOMIDE
     Dosage: 140 MILLIGRAM DAILY FOR 42 DAYS
     Route: 048
     Dates: start: 2022

REACTIONS (4)
  - Radiotherapy [Unknown]
  - Surgery [Unknown]
  - Hypokinesia [Unknown]
  - Asthenia [Unknown]

NARRATIVE: CASE EVENT DATE: 20220101
